FAERS Safety Report 8573807 (Version 2)
Quarter: 2015Q1

REPORT INFORMATION
  Report Type: Spontaneous
  Country: US (occurrence: US)
  Receive Date: 20120522
  Receipt Date: 20150103
  Transmission Date: 20150721
  Serious: No
  Sender: FDA-Public Use
  Company Number: US-ASTRAZENECA-2011SE44787

PATIENT
  Age: 687 Month
  Sex: Female

DRUGS (2)
  1. NEXIUM [Suspect]
     Active Substance: ESOMEPRAZOLE MAGNESIUM
     Route: 048
  2. PRILOSEC [Suspect]
     Active Substance: OMEPRAZOLE MAGNESIUM
     Route: 048

REACTIONS (4)
  - Gastric disorder [Unknown]
  - Functional gastrointestinal disorder [Unknown]
  - Drug dose omission [Unknown]
  - Dyspepsia [Unknown]

NARRATIVE: CASE EVENT DATE: 201410
